FAERS Safety Report 25370621 (Version 2)
Quarter: 2025Q4

REPORT INFORMATION
  Report Type: Spontaneous
  Country: CN (occurrence: CN)
  Receive Date: 20250528
  Receipt Date: 20251208
  Transmission Date: 20260118
  Serious: Yes (Other)
  Sender: KAMADA LTD.
  Company Number: CN-KAMADA LTD.-2025KAM00007

PATIENT

DRUGS (4)
  1. HEPATITIS B IMMUNE GLOBULIN [Suspect]
     Active Substance: HUMAN HEPATITIS B VIRUS IMMUNE GLOBULIN
     Indication: Hepatitis B
     Dosage: 100 IU WITHIN 6H OF BIRTH
     Route: 030
  2. HEPATITIS B VIRUS VACCINE [Suspect]
     Active Substance: HEPATITIS B VIRUS VACCINE
     Indication: Hepatitis B
     Dosage: 10 ?G
  3. HEPATITIS B VIRUS VACCINE [Suspect]
     Active Substance: HEPATITIS B VIRUS VACCINE
     Dosage: 10 ?G; WEEK 4
  4. HEPATITIS B VIRUS VACCINE [Suspect]
     Active Substance: HEPATITIS B VIRUS VACCINE
     Dosage: 10 ?G; WEEK 24

REACTIONS (2)
  - Drug ineffective [Unknown]
  - Underdose [Unknown]
